FAERS Safety Report 5411656-9 (Version None)
Quarter: 2007Q3

REPORT INFORMATION
  Report Type: 
  Country: None (occurrence: None)
  Receive Date: 20070810
  Receipt Date: 20070731
  Transmission Date: 20080115
  Serious: Yes (Other)
  Sender: FDA-Public Use
  Company Number: US-PFIZER INC-2007064423

PATIENT
  Sex: Female
  Weight: 81.818 kg

DRUGS (4)
  1. DILANTIN [Suspect]
     Indication: CONVULSION
  2. CHANTIX [Suspect]
     Indication: SMOKING CESSATION THERAPY
     Dates: start: 20070726, end: 20070727
  3. CHANTIX [Suspect]
  4. LOTREL [Suspect]
     Indication: BLOOD PRESSURE

REACTIONS (3)
  - APHASIA [None]
  - CEREBROVASCULAR ACCIDENT [None]
  - HYPERSENSITIVITY [None]
